FAERS Safety Report 25274997 (Version 1)
Quarter: 2025Q2

REPORT INFORMATION
  Report Type: Spontaneous
  Country: US (occurrence: None)
  Receive Date: 20250506
  Receipt Date: 20250506
  Transmission Date: 20250716
  Serious: Yes (Life-Threatening, Hospitalization, Disabling, Other)
  Sender: FDA-CTU
  Company Number: None

PATIENT
  Age: 66 Year
  Sex: Female
  Weight: 69.3 kg

DRUGS (1)
  1. CLOPIDOGREL [Suspect]
     Active Substance: CLOPIDOGREL BISULFATE
     Indication: Stent placement
     Dosage: 1 TABLET DAILY ORAL
     Route: 048
     Dates: start: 20240803, end: 20240831

REACTIONS (6)
  - Intestinal haemorrhage [None]
  - Melaena [None]
  - Peripheral vein thrombosis [None]
  - Blood pressure decreased [None]
  - Gait inability [None]
  - Liver injury [None]

NARRATIVE: CASE EVENT DATE: 20240803
